FAERS Safety Report 24625529 (Version 1)
Quarter: 2024Q4

REPORT INFORMATION
  Report Type: Spontaneous
  Country: US (occurrence: None)
  Receive Date: 20241115
  Receipt Date: 20241115
  Transmission Date: 20250114
  Serious: No
  Sender: Public
  Company Number: None

PATIENT
  Age: 35 Year
  Sex: Female
  Weight: 81 kg

DRUGS (2)
  1. AIMOVIG [Suspect]
     Active Substance: ERENUMAB-AOOE
     Indication: Migraine with aura
     Dosage: 140 MG/ML ONCE MONTHLY SUBCUTNEOUS?
     Route: 058
     Dates: start: 20240619
  2. AIMOVIG [Suspect]
     Active Substance: ERENUMAB-AOOE
     Indication: Pain

REACTIONS (3)
  - Pregnancy [None]
  - Exposure during pregnancy [None]
  - Therapy cessation [None]

NARRATIVE: CASE EVENT DATE: 20241115
